FAERS Safety Report 15738573 (Version 1)
Quarter: 2018Q4

REPORT INFORMATION
  Report Type: Spontaneous
  Country: US (occurrence: US)
  Receive Date: 20181219
  Receipt Date: 20181219
  Transmission Date: 20190205
  Serious: No
  Sender: FDA-Public Use
  Company Number: US-PFIZER INC-2018516502

PATIENT
  Age: 30 Year
  Sex: Female
  Weight: 54.42 kg

DRUGS (8)
  1. LYRICA [Suspect]
     Active Substance: PREGABALIN
     Indication: NEURALGIA
     Dosage: 200 MG, 1X/DAY
     Route: 048
     Dates: start: 20181101
  2. LYRICA [Suspect]
     Active Substance: PREGABALIN
     Indication: PARAPLEGIA
     Dosage: 100 MG, 2X/DAY
     Route: 048
     Dates: start: 20181101
  3. OXCARBAZEPINE. [Concomitant]
     Active Substance: OXCARBAZEPINE
     Dosage: 600 MG, 1X/DAY
     Route: 048
  4. XARELTO [Concomitant]
     Active Substance: RIVAROXABAN
     Dosage: 20 MG, 1X/DAY
  5. GABAPENTIN. [Concomitant]
     Active Substance: GABAPENTIN
     Indication: NEURALGIA
     Dosage: 200 MG, 4X/DAY
     Route: 048
  6. SENNA [SENNA ALEXANDRINA] [Concomitant]
     Dosage: 25 MG, 1X/DAY
  7. COLACE [Concomitant]
     Active Substance: DOCUSATE SODIUM
     Dosage: 100 MG, 3X/DAY
  8. OXCARBAZEPINE. [Concomitant]
     Active Substance: OXCARBAZEPINE
     Dosage: 300 MG, 2X/DAY
     Route: 048

REACTIONS (1)
  - Drug ineffective [Unknown]
